FAERS Safety Report 24621974 (Version 1)
Quarter: 2024Q4

REPORT INFORMATION
  Report Type: Spontaneous
  Country: US (occurrence: US)
  Receive Date: 20241114
  Receipt Date: 20241114
  Transmission Date: 20250115
  Serious: No
  Sender: ANI
  Company Number: US-ANIPHARMA-2024-US-005448

PATIENT
  Sex: 0

DRUGS (1)
  1. FLECAINIDE ACETATE [Suspect]
     Active Substance: FLECAINIDE ACETATE
     Indication: Palpitations
     Dosage: 1 EVERY 12 HRS
     Route: 048
     Dates: start: 20240113, end: 20240127

REACTIONS (3)
  - Drug ineffective [Recovered/Resolved]
  - Product use in unapproved indication [Not Recovered/Not Resolved]
  - Drug ineffective for unapproved indication [Recovered/Resolved]

NARRATIVE: CASE EVENT DATE: 20240113
